FAERS Safety Report 4875095-1 (Version None)
Quarter: 2006Q1

REPORT INFORMATION
  Report Type: 
  Country: None (occurrence: None)
  Receive Date: 20060109
  Receipt Date: 20051024
  Transmission Date: 20060701
  Serious: Yes (Hospitalization)
  Sender: FDA-Public Use
  Company Number: FR-GLAXOSMITHKLINE-B0399250A

PATIENT
  Sex: Male
  Weight: 70 kg

DRUGS (2)
  1. LAMICTAL [Suspect]
     Indication: EPILEPSY
     Dosage: 100MG TWICE PER DAY
     Route: 048
     Dates: start: 20030101
  2. DEPAKINE 500 [Concomitant]
     Indication: EPILEPSY
     Dosage: 1500MG PER DAY
     Route: 065
     Dates: start: 19930101

REACTIONS (5)
  - BALANCE DISORDER [None]
  - DIZZINESS [None]
  - FALL [None]
  - GAIT DISTURBANCE [None]
  - PARAPARESIS [None]
